FAERS Safety Report 5319281-5 (Version None)
Quarter: 2007Q2

REPORT INFORMATION
  Report Type: 
  Country: None (occurrence: None)
  Receive Date: 20070508
  Receipt Date: 20070426
  Transmission Date: 20071010
  Serious: Yes (Other)
  Sender: FDA-Public Use
  Company Number: US-PFIZER INC-2007019477

PATIENT
  Sex: Male
  Weight: 90.7 kg

DRUGS (7)
  1. CHANTIX [Suspect]
     Indication: SMOKING CESSATION THERAPY
  2. ALL OTHER THERAPEUTIC PRODUCTS [Concomitant]
  3. OLANZAPINE [Concomitant]
  4. CELEXA [Concomitant]
     Indication: DEPRESSION
  5. TOPIRAMATE [Concomitant]
  6. KLONOPIN [Concomitant]
  7. TEMAZEPAM [Concomitant]

REACTIONS (5)
  - ANXIETY [None]
  - IRRITABILITY [None]
  - NERVOUSNESS [None]
  - PSYCHOTIC DISORDER [None]
  - RESTLESSNESS [None]
